FAERS Safety Report 19331029 (Version 1)
Quarter: 2021Q2

REPORT INFORMATION
  Report Type: Spontaneous
  Country: IN (occurrence: IN)
  Receive Date: 20210528
  Receipt Date: 20210528
  Transmission Date: 20210717
  Serious: Yes (Other)
  Sender: FDA-Public Use
  Company Number: IN-PFIZER INC-2021557588

PATIENT
  Age: 39 Year
  Sex: Female

DRUGS (2)
  1. PALBACE [Suspect]
     Active Substance: PALBOCICLIB
     Indication: BREAST CANCER METASTATIC
     Dosage: 125 MG, CYCLIC (OD, 3 WEEKS IN AND 1 WEEK OFF)
     Route: 048
     Dates: start: 20200926
  2. FULVENAT [Concomitant]
     Dosage: 500 MG, MONTHLY (250 MG EACH ON EACH BUTTOCK; 500 MG ONCE EVERY MONTH)
     Route: 030

REACTIONS (2)
  - Second primary malignancy [Unknown]
  - Genital neoplasm malignant female [Unknown]
